FAERS Safety Report 24940498 (Version 1)
Quarter: 2025Q1

REPORT INFORMATION
  Report Type: Spontaneous
  Country: US (occurrence: US)
  Receive Date: 20250207
  Receipt Date: 20250207
  Transmission Date: 20250409
  Serious: Yes (Other)
  Sender: AUROBINDO
  Company Number: US-AUROBINDO-AUR-APL-2025-006102

PATIENT
  Age: 72 Year
  Sex: Female
  Weight: 90.71 kg

DRUGS (2)
  1. NEBIVOLOL [Suspect]
     Active Substance: NEBIVOLOL
     Indication: Tachycardia
     Dosage: 1 DOSAGE FORM, ONCE A DAY
     Route: 065
  2. NEBIVOLOL [Suspect]
     Active Substance: NEBIVOLOL
     Dosage: 1 DOSAGE FORM, ONCE A DAY
     Route: 065
     Dates: start: 202405

REACTIONS (7)
  - Atrial fibrillation [Unknown]
  - Pneumonia aspiration [Unknown]
  - Necrosis [Unknown]
  - Dizziness [Unknown]
  - Blood urine present [Unknown]
  - Gastrooesophageal reflux disease [Unknown]
  - Recalled product administered [Unknown]
